FAERS Safety Report 6430308-X (Version None)
Quarter: 2009Q4

REPORT INFORMATION
  Report Type: 
  Country: None (occurrence: None)
  Receive Date: 20091105
  Receipt Date: 20091105
  Transmission Date: 20100525
  Serious: No
  Sender: FDA-Public Use
  Company Number: None

PATIENT
  Sex: Female
  Weight: 80.2867 kg

DRUGS (2)
  1. PRILOSEC [Suspect]
     Indication: GASTRITIS
     Dosage: 20MG ORE TAB ORALLY QHS ORAL
     Route: 048
     Dates: start: 20091001
  2. PRILOSEC [Suspect]
     Indication: GASTROOESOPHAGEAL REFLUX DISEASE
     Dosage: 20MG ORE TAB ORALLY QHS ORAL
     Route: 048
     Dates: start: 20091001

REACTIONS (1)
  - DYSPEPSIA [None]
